FAERS Safety Report 17338639 (Version 1)
Quarter: 2020Q1

REPORT INFORMATION
  Report Type: Spontaneous
  Country: US (occurrence: US)
  Receive Date: 20200129
  Receipt Date: 20200129
  Transmission Date: 20200409
  Serious: Yes (Death)
  Sender: FDA-Public Use
  Company Number: US-PERRIGO-20US001009

PATIENT
  Age: 32 Year
  Sex: Male

DRUGS (6)
  1. SERTRALINE [Suspect]
     Active Substance: SERTRALINE HYDROCHLORIDE
     Indication: SUSPECTED SUICIDE
     Dosage: UNKNOWN, UNKNOWN
     Route: 048
  2. ACETAMINOPHEN. [Suspect]
     Active Substance: ACETAMINOPHEN
     Indication: SUSPECTED SUICIDE
     Dosage: UNKNOWN, UNKNOWN
     Route: 048
  3. SALICYLATES NOS [Suspect]
     Active Substance: UNSPECIFIED INGREDIENT
     Indication: SUSPECTED SUICIDE
     Dosage: UNKNOWN, UNKNOWN
     Route: 048
  4. QUETIAPINE. [Suspect]
     Active Substance: QUETIAPINE
     Indication: SUSPECTED SUICIDE
     Dosage: UNKNOWN, UNKNOWN
     Route: 048
  5. ALCOHOL. [Suspect]
     Active Substance: ALCOHOL
     Indication: SUSPECTED SUICIDE
     Dosage: UNKNOWN, UNKNOWN
     Route: 048
  6. VALPROIC ACID. [Suspect]
     Active Substance: VALPROIC ACID
     Indication: SUSPECTED SUICIDE
     Dosage: UNKNOWN, UNKNOWN
     Route: 048

REACTIONS (1)
  - Death [Fatal]

NARRATIVE: CASE EVENT DATE: 2018
